FAERS Safety Report 18159539 (Version 1)
Quarter: 2020Q3

REPORT INFORMATION
  Report Type: Spontaneous
  Country: US (occurrence: US)
  Receive Date: 20200817
  Receipt Date: 20200817
  Transmission Date: 20201103
  Serious: Yes (Hospitalization, Other)
  Sender: FDA-Public Use
  Company Number: US-PURDUE-USA-2020-0161360

PATIENT
  Sex: Female
  Weight: 65.7 kg

DRUGS (1)
  1. OXYCONTIN [Suspect]
     Active Substance: OXYCODONE HYDROCHLORIDE
     Indication: TONSILLECTOMY
     Dosage: UNK
     Route: 048
     Dates: start: 200302

REACTIONS (3)
  - Drug dependence [Recovering/Resolving]
  - Road traffic accident [Recovered/Resolved]
  - Unevaluable event [Unknown]
